FAERS Safety Report 8529459-5 (Version None)
Quarter: 2012Q3

REPORT INFORMATION
  Report Type: 
  Country: None (occurrence: None)
  Receive Date: 20120723
  Receipt Date: 20120713
  Transmission Date: 20120928
  Serious: Yes (Other)
  Sender: FDA-Public Use
  Company Number: GR-JNJFOC-20120407611

PATIENT
  Sex: Female

DRUGS (5)
  1. STELARA [Suspect]
     Route: 058
     Dates: start: 20120710, end: 20120710
  2. UNSPECIFIED MEDICATION FOR HYPOTHYROIDISM [Concomitant]
     Indication: HYPOTHYROIDISM
     Route: 065
  3. STELARA [Suspect]
     Indication: PSORIASIS
     Route: 058
  4. STELARA [Suspect]
     Route: 058
     Dates: end: 20120413
  5. ANTIEPILEPTIC MEDICATION [Concomitant]
     Indication: EPILEPSY
     Route: 065

REACTIONS (3)
  - SWELLING FACE [None]
  - OEDEMA PERIPHERAL [None]
  - INJECTION SITE REACTION [None]
